FAERS Safety Report 18609444 (Version 9)
Quarter: 2022Q3

REPORT INFORMATION
  Report Type: Report from Study
  Country: JP (occurrence: JP)
  Receive Date: 20201214
  Receipt Date: 20220701
  Transmission Date: 20221027
  Serious: Yes (Other)
  Sender: FDA-Public Use
  Company Number: JP-SA-2020SA316744

PATIENT
  Age: 72 Year
  Sex: Female
  Weight: 53 kg

DRUGS (101)
  1. ISATUXIMAB [Suspect]
     Active Substance: ISATUXIMAB
     Indication: Plasma cell myeloma
     Dosage: 506.5 MG (10 MG/KG)
     Route: 042
     Dates: start: 20180821, end: 20201110
  2. ISATUXIMAB [Suspect]
     Active Substance: ISATUXIMAB
     Dosage: 506 MG (10 MG/KG)
     Route: 042
     Dates: start: 20201013, end: 20201013
  3. ISATUXIMAB [Suspect]
     Active Substance: ISATUXIMAB
     Dosage: 520 MG (10 MG/KG)
     Route: 042
     Dates: start: 20201124, end: 20201124
  4. ISATUXIMAB [Suspect]
     Active Substance: ISATUXIMAB
     Dosage: 544MG (10MG/KG)
     Route: 042
     Dates: start: 20201222, end: 20201222
  5. ISATUXIMAB [Suspect]
     Active Substance: ISATUXIMAB
     Dosage: 530MG (10MG/KG)
     Route: 042
     Dates: start: 20210119, end: 20210119
  6. ISATUXIMAB [Suspect]
     Active Substance: ISATUXIMAB
     Dosage: 530MG (10MG/KG)
     Route: 042
     Dates: start: 20210216, end: 20210216
  7. ISATUXIMAB [Suspect]
     Active Substance: ISATUXIMAB
     Dosage: 530MG (10MG/KG)
     Route: 042
     Dates: start: 20210316, end: 20210316
  8. ISATUXIMAB [Suspect]
     Active Substance: ISATUXIMAB
     Dosage: 530MG (10MG/KG)
     Route: 042
     Dates: start: 20210414, end: 20210414
  9. ISATUXIMAB [Suspect]
     Active Substance: ISATUXIMAB
     Dosage: 530MG (10MG/KG)
     Route: 042
     Dates: start: 20210512, end: 20210512
  10. ISATUXIMAB [Suspect]
     Active Substance: ISATUXIMAB
     Dosage: 530MG (10MG/KG)
     Route: 042
     Dates: start: 20210609, end: 20210609
  11. ISATUXIMAB [Suspect]
     Active Substance: ISATUXIMAB
     Dosage: 520 MG (10 MG/KG)
     Route: 042
     Dates: start: 20210707, end: 20210707
  12. ISATUXIMAB [Suspect]
     Active Substance: ISATUXIMAB
     Dosage: 520 MG (10 MG/KG)
     Route: 042
     Dates: start: 20210804, end: 20210804
  13. ISATUXIMAB [Suspect]
     Active Substance: ISATUXIMAB
     Dosage: 520 MG (10 MG/KG)
     Route: 042
     Dates: start: 20210901, end: 20210901
  14. ISATUXIMAB [Suspect]
     Active Substance: ISATUXIMAB
     Dosage: 520 MG (10 MG/KG)
     Route: 042
     Dates: start: 20210929, end: 20210929
  15. ISATUXIMAB [Suspect]
     Active Substance: ISATUXIMAB
     Dosage: 510 MG (10 MG/KG)
     Route: 042
     Dates: start: 20211027, end: 20211027
  16. ISATUXIMAB [Suspect]
     Active Substance: ISATUXIMAB
     Dosage: 510 MG (10 MG/KG)
     Route: 042
     Dates: start: 20211124, end: 20211124
  17. ISATUXIMAB [Suspect]
     Active Substance: ISATUXIMAB
     Dosage: 510 MG (10 MG/KG)
     Route: 042
     Dates: start: 20211222, end: 20211222
  18. ISATUXIMAB [Suspect]
     Active Substance: ISATUXIMAB
     Dosage: 500 MG (10 MG/KG)
     Route: 042
     Dates: start: 20220119, end: 20220119
  19. ISATUXIMAB [Suspect]
     Active Substance: ISATUXIMAB
     Dosage: 500 MG (10 MG/KG)
     Route: 042
     Dates: start: 20220216, end: 20220216
  20. ISATUXIMAB [Suspect]
     Active Substance: ISATUXIMAB
     Dosage: 500 MG (10 MG/KG)
     Route: 042
     Dates: start: 20220316, end: 20220316
  21. ISATUXIMAB [Suspect]
     Active Substance: ISATUXIMAB
     Dosage: 500 MG (10 MG/KG)
     Route: 042
     Dates: start: 20220413, end: 20220413
  22. ISATUXIMAB [Suspect]
     Active Substance: ISATUXIMAB
     Dosage: 500 MG (10 MG/KG)
     Route: 042
     Dates: start: 20220511, end: 20220511
  23. ISATUXIMAB [Suspect]
     Active Substance: ISATUXIMAB
     Dosage: 500 MG (10 MG/KG)
     Route: 042
     Dates: start: 20220608, end: 20220608
  24. BORTEZOMIB [Suspect]
     Active Substance: BORTEZOMIB
     Indication: Plasma cell myeloma
     Dosage: 1.9 MG (1.3 MG/M2)
     Route: 058
     Dates: start: 20180821, end: 20190125
  25. LENALIDOMIDE [Suspect]
     Active Substance: LENALIDOMIDE
     Indication: Plasma cell myeloma
     Dosage: 25 MG
     Route: 048
     Dates: start: 20180821, end: 20180917
  26. LENALIDOMIDE [Suspect]
     Active Substance: LENALIDOMIDE
     Dosage: 20 MG
     Route: 048
     Dates: start: 20180121, end: 20201102
  27. LENALIDOMIDE [Suspect]
     Active Substance: LENALIDOMIDE
     Dosage: 20 MG
     Route: 048
     Dates: start: 20201013, end: 20201102
  28. DEXAMETHASONE [Suspect]
     Active Substance: DEXAMETHASONE
     Indication: Plasma cell myeloma
     Dosage: 20 MG
     Route: 042
     Dates: start: 20180821, end: 20180821
  29. DEXAMETHASONE [Suspect]
     Active Substance: DEXAMETHASONE
     Dosage: 20 MG
     Route: 048
     Dates: start: 20180822, end: 20181110
  30. DEXAMETHASONE [Suspect]
     Active Substance: DEXAMETHASONE
     Dosage: 20 MG
     Route: 065
  31. DEXAMETHASONE [Suspect]
     Active Substance: DEXAMETHASONE
     Dosage: 20 MG/DAY
     Route: 042
     Dates: start: 20201013
  32. DEXAMETHASONE [Suspect]
     Active Substance: DEXAMETHASONE
     Dosage: 20 MG/DAY
     Route: 048
     Dates: start: 20201020
  33. DEXAMETHASONE [Suspect]
     Active Substance: DEXAMETHASONE
     Dosage: 20 MG/DAY
     Route: 048
     Dates: start: 20201027
  34. DEXAMETHASONE [Suspect]
     Active Substance: DEXAMETHASONE
     Dosage: 20 MG/DAY
     Route: 048
     Dates: start: 20201103
  35. VALACYCLOVIR HYDROCHLORIDE [Concomitant]
     Active Substance: VALACYCLOVIR HYDROCHLORIDE
     Indication: Prophylaxis
     Dosage: 1 DF, BID
     Route: 048
     Dates: start: 20180821
  36. ASPIRIN [Concomitant]
     Active Substance: ASPIRIN
     Indication: Thrombosis prophylaxis
     Dosage: 1 DF, QD
     Route: 048
     Dates: start: 20180821, end: 20201124
  37. SULFAMETHOXAZOLE\TRIMETHOPRIM [Concomitant]
     Active Substance: SULFAMETHOXAZOLE\TRIMETHOPRIM
     Indication: Infection prophylaxis
     Dosage: 1 DF, QD
     Route: 048
     Dates: start: 20181225
  38. CALCIUM CARBONATE\CHOLECALCIFEROL\MAGNESIUM CARBONATE [Concomitant]
     Active Substance: CALCIUM CARBONATE\CHOLECALCIFEROL\MAGNESIUM CARBONATE
     Indication: Prophylaxis
     Dosage: 2 DF, QD
     Route: 048
     Dates: start: 20190319
  39. SENNOSIDE A [Concomitant]
     Active Substance: SENNOSIDE A
     Indication: Constipation
     Dosage: 2 DF, QD
     Route: 048
     Dates: start: 20180831
  40. MAGNESIUM OXIDE [Concomitant]
     Active Substance: MAGNESIUM OXIDE
     Indication: Constipation
     Dosage: 1 DF, TID
     Route: 048
     Dates: start: 20180831
  41. ACETAMINOPHEN [Concomitant]
     Active Substance: ACETAMINOPHEN
     Indication: Prophylaxis
     Dosage: DAILY DOSE: 1000 MG
     Route: 048
     Dates: start: 20200818, end: 20200818
  42. ACETAMINOPHEN [Concomitant]
     Active Substance: ACETAMINOPHEN
     Indication: Product used for unknown indication
     Dosage: DAILY DOSE: 1000 MG
     Route: 048
     Dates: start: 20201013, end: 20201013
  43. ACETAMINOPHEN [Concomitant]
     Active Substance: ACETAMINOPHEN
     Dosage: DAILY DOSE: 1000 MG
     Route: 048
     Dates: start: 20201222, end: 20201222
  44. ACETAMINOPHEN [Concomitant]
     Active Substance: ACETAMINOPHEN
     Dosage: DAILY DOSE: 1000 MG
     Route: 048
     Dates: start: 20210119, end: 20210119
  45. ACETAMINOPHEN [Concomitant]
     Active Substance: ACETAMINOPHEN
     Dosage: DAILY DOSE: 1000 MG
     Route: 048
     Dates: start: 20210609, end: 20210609
  46. ACETAMINOPHEN [Concomitant]
     Active Substance: ACETAMINOPHEN
     Dosage: DAILY DOSE: 1000 MG
     Route: 048
     Dates: start: 20211027, end: 20211027
  47. ACETAMINOPHEN [Concomitant]
     Active Substance: ACETAMINOPHEN
     Dosage: UNK
     Route: 048
     Dates: start: 20180824
  48. ACETAMINOPHEN [Concomitant]
     Active Substance: ACETAMINOPHEN
     Dosage: DAILY DOSE: 1000 MG
     Route: 048
     Dates: start: 20210804, end: 20210804
  49. ACETAMINOPHEN [Concomitant]
     Active Substance: ACETAMINOPHEN
     Dosage: DAILY DOSE: 1000 MG
     Route: 048
     Dates: start: 20210901, end: 20210901
  50. ACETAMINOPHEN [Concomitant]
     Active Substance: ACETAMINOPHEN
     Dosage: DAILY DOSE: 1000 MG
     Route: 048
     Dates: start: 20210929, end: 20210929
  51. ACETAMINOPHEN [Concomitant]
     Active Substance: ACETAMINOPHEN
     Dosage: DAILY DOSE: 1000 MG
     Route: 048
     Dates: start: 20211027, end: 20211027
  52. ACETAMINOPHEN [Concomitant]
     Active Substance: ACETAMINOPHEN
     Dosage: DAILY DOSE: 1000 MG
     Route: 048
     Dates: start: 20211124, end: 20211124
  53. ACETAMINOPHEN [Concomitant]
     Active Substance: ACETAMINOPHEN
     Dosage: DAILY DOSE: 1000 MG
     Route: 042
     Dates: start: 20211222, end: 20211222
  54. ACETAMINOPHEN [Concomitant]
     Active Substance: ACETAMINOPHEN
     Dosage: DAILY DOSE: 1000 MG
     Route: 048
     Dates: start: 20220119, end: 20220119
  55. ACETAMINOPHEN [Concomitant]
     Active Substance: ACETAMINOPHEN
     Dosage: DAILY DOSE: 1000 MG
     Route: 048
     Dates: start: 20220216, end: 20220216
  56. ACETAMINOPHEN [Concomitant]
     Active Substance: ACETAMINOPHEN
     Dosage: DAILY DOSE: 1000 MG
     Route: 048
     Dates: start: 20220316, end: 20220316
  57. ACETAMINOPHEN [Concomitant]
     Active Substance: ACETAMINOPHEN
     Dosage: DAILY DOSE: 1000 MG
     Route: 048
     Dates: start: 20220413, end: 20220413
  58. FAMOTIDINE [Concomitant]
     Active Substance: FAMOTIDINE
     Indication: Prophylaxis
     Dosage: DAILY DOSE: 20 MG
     Route: 042
     Dates: start: 20200818, end: 20200818
  59. FAMOTIDINE [Concomitant]
     Active Substance: FAMOTIDINE
     Dosage: DAILY DOSE: 20 MG
     Route: 042
     Dates: start: 20201013, end: 20201013
  60. FAMOTIDINE [Concomitant]
     Active Substance: FAMOTIDINE
     Dosage: DAILY DOSE: 20 MG
     Route: 042
     Dates: start: 20201222, end: 20201222
  61. FAMOTIDINE [Concomitant]
     Active Substance: FAMOTIDINE
     Dosage: DAILY DOSE: 20 MG
     Route: 042
     Dates: start: 20210119, end: 20210119
  62. FAMOTIDINE [Concomitant]
     Active Substance: FAMOTIDINE
     Dosage: DAILY DOSE: 20 MG
     Route: 042
     Dates: start: 20210609, end: 20210609
  63. FAMOTIDINE [Concomitant]
     Active Substance: FAMOTIDINE
     Dosage: DAILY DOSE: 20 MG
     Route: 042
     Dates: start: 20210707, end: 20210707
  64. FAMOTIDINE [Concomitant]
     Active Substance: FAMOTIDINE
     Dosage: DAILY DOSE: 20 MG
     Route: 042
     Dates: start: 20210804, end: 20210804
  65. FAMOTIDINE [Concomitant]
     Active Substance: FAMOTIDINE
     Dosage: DAILY DOSE: 20 MG
     Route: 042
     Dates: start: 20210901, end: 20210901
  66. FAMOTIDINE [Concomitant]
     Active Substance: FAMOTIDINE
     Dosage: DAILY DOSE: 20 MG
     Route: 042
     Dates: start: 20210929, end: 20210929
  67. FAMOTIDINE [Concomitant]
     Active Substance: FAMOTIDINE
     Dosage: DAILY DOSE: 20 MG
     Route: 042
     Dates: start: 20211027, end: 20211027
  68. FAMOTIDINE [Concomitant]
     Active Substance: FAMOTIDINE
     Dosage: DAILY DOSE: 20 MG
     Route: 030
     Dates: start: 20211124, end: 20211124
  69. FAMOTIDINE [Concomitant]
     Active Substance: FAMOTIDINE
     Dosage: DAILY DOSE: 20 MG
     Route: 042
     Dates: start: 20211222, end: 20211222
  70. FAMOTIDINE [Concomitant]
     Active Substance: FAMOTIDINE
     Dosage: DAILY DOSE: 20 MG
     Route: 042
     Dates: start: 20220119, end: 20220119
  71. FAMOTIDINE [Concomitant]
     Active Substance: FAMOTIDINE
     Dosage: DAILY DOSE: 20 MG
     Route: 042
     Dates: start: 20220216, end: 20220216
  72. FAMOTIDINE [Concomitant]
     Active Substance: FAMOTIDINE
     Dosage: DAILY DOSE: 20 MG
     Route: 042
     Dates: start: 20220316, end: 20220316
  73. FAMOTIDINE [Concomitant]
     Active Substance: FAMOTIDINE
     Dosage: DAILY DOSE: 20 MG
     Route: 042
     Dates: start: 20220413, end: 20220413
  74. D CHLORPHENIRAMINE MALEATE TAKEDA TEVA [Concomitant]
     Indication: Prophylaxis
     Dosage: DAILY DOSE: 10 MG
     Route: 042
     Dates: start: 20200818, end: 20200818
  75. D CHLORPHENIRAMINE MALEATE TAKEDA TEVA [Concomitant]
     Dosage: DAILY DOSE: 10 MG
     Route: 042
     Dates: start: 20201013, end: 20201013
  76. D CHLORPHENIRAMINE MALEATE TAKEDA TEVA [Concomitant]
     Dosage: DAILY DOSE: 10 MG
     Route: 042
     Dates: start: 20201222, end: 20201222
  77. D CHLORPHENIRAMINE MALEATE TAKEDA TEVA [Concomitant]
     Dosage: DAILY DOSE: 10 MG
     Route: 042
     Dates: start: 20210119, end: 20210119
  78. D CHLORPHENIRAMINE MALEATE TAKEDA TEVA [Concomitant]
     Dosage: DAILY DOSE: 10 MG
     Route: 042
     Dates: start: 20210609, end: 20210609
  79. D CHLORPHENIRAMINE MALEATE TAKEDA TEVA [Concomitant]
     Dosage: DAILY DOSE: 10 MG
     Route: 042
     Dates: start: 20210707, end: 20210707
  80. D CHLORPHENIRAMINE MALEATE TAKEDA TEVA [Concomitant]
     Dosage: DAILY DOSE: 10 MG
     Route: 042
     Dates: start: 20210804, end: 20210804
  81. D CHLORPHENIRAMINE MALEATE TAKEDA TEVA [Concomitant]
     Dosage: DAILY DOSE: 10 MG
     Route: 042
     Dates: start: 20210901, end: 20210901
  82. D CHLORPHENIRAMINE MALEATE TAKEDA TEVA [Concomitant]
     Dosage: DAILY DOSE: 10 MG
     Route: 042
     Dates: start: 20210929, end: 20210929
  83. D CHLORPHENIRAMINE MALEATE TAKEDA TEVA [Concomitant]
     Dosage: DAILY DOSE: 10 MG
     Route: 042
     Dates: start: 20211027, end: 20211027
  84. D CHLORPHENIRAMINE MALEATE TAKEDA TEVA [Concomitant]
     Dosage: DAILY DOSE: 10 MG
     Route: 042
     Dates: start: 20211124, end: 20211124
  85. D CHLORPHENIRAMINE MALEATE TAKEDA TEVA [Concomitant]
     Dosage: DAILY DOSE: 10 MG
     Route: 042
     Dates: start: 20211222, end: 20211222
  86. D CHLORPHENIRAMINE MALEATE TAKEDA TEVA [Concomitant]
     Dosage: DAILY DOSE: 10 MG
     Route: 042
     Dates: start: 20220119, end: 20220119
  87. D CHLORPHENIRAMINE MALEATE TAKEDA TEVA [Concomitant]
     Dosage: DAILY DOSE: 10 MG
     Route: 042
     Dates: start: 20220216, end: 20220216
  88. D CHLORPHENIRAMINE MALEATE TAKEDA TEVA [Concomitant]
     Dosage: DAILY DOSE: 10 MG
     Route: 042
     Dates: start: 20220316, end: 20220316
  89. D CHLORPHENIRAMINE MALEATE TAKEDA TEVA [Concomitant]
     Dosage: DAILY DOSE: 10 MG
     Route: 042
     Dates: start: 20220413, end: 20220413
  90. MAGNESIUM CARBONATE [Concomitant]
     Active Substance: MAGNESIUM CARBONATE
     Indication: Prophylaxis
     Dosage: UNK
     Route: 048
     Dates: start: 20190319
  91. DENOSUMAB [Concomitant]
     Active Substance: DENOSUMAB
     Indication: Prophylaxis
     Dosage: UNK
     Route: 058
     Dates: start: 20190402
  92. LEVOFLOXACIN HEMIHYDRATE [Concomitant]
     Active Substance: LEVOFLOXACIN
     Indication: Prophylaxis
     Dosage: UNK
     Route: 047
     Dates: start: 20191010
  93. BETAMETHASONE SODIUM PHOSPHATE [Concomitant]
     Active Substance: BETAMETHASONE SODIUM PHOSPHATE
     Indication: Prophylaxis
     Dosage: UNK
     Route: 047
     Dates: start: 20191010
  94. DICLOFENAC SODIUM [Concomitant]
     Active Substance: DICLOFENAC SODIUM
     Indication: Prophylaxis
     Dosage: UNK
     Route: 047
     Dates: start: 20191010
  95. FERROUS CITRATE [Concomitant]
     Active Substance: FERROUS CITRATE
     Indication: Iron deficiency anaemia
     Dosage: UNK
     Route: 048
     Dates: start: 20191029
  96. KENKETU GLOVENIN-I [Concomitant]
     Active Substance: HUMAN IMMUNOGLOBULIN G
     Indication: Product used for unknown indication
     Dosage: UNK
     Route: 042
     Dates: start: 20200915, end: 20200915
  97. KENKETU GLOVENIN-I [Concomitant]
     Active Substance: HUMAN IMMUNOGLOBULIN G
     Dosage: UNK
     Route: 042
     Dates: start: 20201013, end: 20201013
  98. KENKETU GLOVENIN-I [Concomitant]
     Active Substance: HUMAN IMMUNOGLOBULIN G
     Dosage: UNK
     Route: 042
     Dates: start: 20210609, end: 20210609
  99. KENKETU GLOVENIN-I [Concomitant]
     Active Substance: HUMAN IMMUNOGLOBULIN G
     Dosage: UNK
     Route: 042
     Dates: start: 20210804, end: 20210804
  100. KENKETU GLOVENIN-I [Concomitant]
     Active Substance: HUMAN IMMUNOGLOBULIN G
     Dosage: UNK
     Route: 042
     Dates: start: 20210929, end: 20210929
  101. KENKETU GLOVENIN-I [Concomitant]
     Active Substance: HUMAN IMMUNOGLOBULIN G
     Dosage: UNK
     Route: 042
     Dates: start: 20211124

REACTIONS (1)
  - Myelodysplastic syndrome [Not Recovered/Not Resolved]

NARRATIVE: CASE EVENT DATE: 20201022
